FAERS Safety Report 7608280-6 (Version None)
Quarter: 2011Q3

REPORT INFORMATION
  Report Type: 
  Country: None (occurrence: None)
  Receive Date: 20110714
  Receipt Date: 20110711
  Transmission Date: 20111222
  Serious: Yes (Other)
  Sender: FDA-Public Use
  Company Number: US-PFIZER INC-2011156473

PATIENT
  Sex: Female

DRUGS (4)
  1. LYRICA [Suspect]
     Indication: BURNING SENSATION
  2. METHADONE [Concomitant]
     Dosage: UNK
  3. LYRICA [Suspect]
     Indication: NERVE INJURY
     Dosage: UNK
     Route: 048
     Dates: start: 20050101
  4. AMITRIPTYLINE HCL [Suspect]
     Dosage: UNK
     Dates: start: 20080101

REACTIONS (4)
  - ABDOMINAL PAIN [None]
  - NAUSEA [None]
  - DYSPNOEA [None]
  - HAEMATOCHEZIA [None]
